FAERS Safety Report 9918177 (Version 3)
Quarter: 2014Q2

REPORT INFORMATION
  Report Type: Spontaneous
  Country: US (occurrence: US)
  Receive Date: 20140223
  Receipt Date: 20140410
  Transmission Date: 20141212
  Serious: Yes (Other)
  Sender: FDA-Public Use
  Company Number: US-009507513-1402USA009610

PATIENT
  Sex: Male

DRUGS (4)
  1. REBETOL [Suspect]
     Indication: CHRONIC HEPATITIS C
     Dosage: 1200 MG, ONCE IN A DAY
     Route: 065
  2. REBETOL [Suspect]
     Dosage: 800 MG, ONCE IN A DAY
     Route: 065
     Dates: start: 20131113
  3. PEGASYS [Suspect]
     Indication: CHRONIC HEPATITIS C
     Dosage: PROCLICK INJECTOR, 180 MICROGRAM, QW
     Route: 065
     Dates: start: 20131113
  4. VICTRELIS [Suspect]
     Indication: CHRONIC HEPATITIS C
     Dosage: UNK
     Route: 065
     Dates: start: 20130227, end: 20140210

REACTIONS (8)
  - Upper limb fracture [Unknown]
  - Contusion [Unknown]
  - Tooth extraction [Unknown]
  - Hyperkeratosis [Unknown]
  - Chest pain [Unknown]
  - Pruritus [Unknown]
  - Dry mouth [Unknown]
  - Haemoglobin decreased [Unknown]
